FAERS Safety Report 24328725 (Version 1)
Quarter: 2024Q3

REPORT INFORMATION
  Report Type: Spontaneous
  Country: FR (occurrence: FR)
  Receive Date: 20240917
  Receipt Date: 20240917
  Transmission Date: 20241016
  Serious: Yes (Other)
  Sender: ABBVIE
  Company Number: FR-ABBVIE-5915654

PATIENT
  Sex: Male

DRUGS (2)
  1. VENETOCLAX [Suspect]
     Active Substance: VENETOCLAX
     Indication: Diffuse large B-cell lymphoma
     Route: 048
  2. COLUMVI [Concomitant]
     Active Substance: GLOFITAMAB-GXBM
     Indication: Diffuse large B-cell lymphoma
     Dosage: 2.5 MG TO DILUTE, 10MG SOLUTION CC. 1MG/1ML, CONCENTRATE AND DILUENT FOR SOLUTION FOR INFUSION

REACTIONS (2)
  - Diffuse large B-cell lymphoma refractory [Unknown]
  - Off label use [Unknown]
